FAERS Safety Report 21467233 (Version 3)
Quarter: 2022Q4

REPORT INFORMATION
  Report Type: Spontaneous
  Country: IT (occurrence: None)
  Receive Date: 20221017
  Receipt Date: 20221111
  Transmission Date: 20230112
  Serious: Yes (Death, Other)
  Sender: FDA-Public Use
  Company Number: 2022A346186

PATIENT
  Age: 55 Year
  Sex: Male

DRUGS (14)
  1. EVUSHELD [Suspect]
     Active Substance: CILGAVIMAB\TIXAGEVIMAB
     Route: 030
     Dates: start: 20220811, end: 20220811
  2. EVUSHELD [Suspect]
     Active Substance: CILGAVIMAB\TIXAGEVIMAB
     Route: 030
     Dates: start: 20220812
  3. ENOXAPARIN [Concomitant]
     Active Substance: ENOXAPARIN
  4. MYCOPHENOLIC ACID [Concomitant]
     Active Substance: MYCOPHENOLIC ACID
  5. TACROLIMUS [Concomitant]
     Active Substance: TACROLIMUS
  6. PREDNISONE [Concomitant]
     Active Substance: PREDNISONE
  7. ASPIRIN [Concomitant]
     Active Substance: ASPIRIN
  8. NEBIVOLOL [Concomitant]
     Active Substance: NEBIVOLOL
  9. SODIUM BICARBONATE [Concomitant]
     Active Substance: SODIUM BICARBONATE
     Dosage: 8 CP PER DAY
  10. OMEGA3 [Concomitant]
  11. ZETIA [Concomitant]
     Active Substance: EZETIMIBE
  12. ALLOPURINOL [Concomitant]
     Active Substance: ALLOPURINOL
  13. CINACALCET HYDROCHLORIDE [Concomitant]
     Active Substance: CINACALCET HYDROCHLORIDE
  14. AMLODIPINE [Concomitant]
     Active Substance: AMLODIPINE BESYLATE

REACTIONS (6)
  - Deep vein thrombosis [Fatal]
  - Pulmonary embolism [Fatal]
  - Pain [Fatal]
  - Malaise [Fatal]
  - Dyspnoea [Fatal]
  - Cardiac arrest [Fatal]

NARRATIVE: CASE EVENT DATE: 20220811
